FAERS Safety Report 9333486 (Version 1)
Quarter: 2013Q2

REPORT INFORMATION
  Report Type: Spontaneous
  Country: NO (occurrence: NO)
  Receive Date: 20130606
  Receipt Date: 20130606
  Transmission Date: 20140414
  Serious: Yes (Hospitalization)
  Sender: FDA-Public Use
  Company Number: NO-VERTEX PHARMACEUTICALS INC-2013-006804

PATIENT
  Age: 56 Year
  Sex: Male

DRUGS (2)
  1. INCIVO [Suspect]
     Indication: HEPATITIS C
     Route: 065
     Dates: start: 20130102, end: 20130220
  2. GLUCOPHAGE [Concomitant]

REACTIONS (2)
  - Haemorrhage [Recovered/Resolved]
  - Thrombocytopenia [Recovered/Resolved]
